FAERS Safety Report 5086363-5 (Version None)
Quarter: 2006Q3

REPORT INFORMATION
  Report Type: 
  Country: None (occurrence: None)
  Receive Date: 20060823
  Receipt Date: 20060811
  Transmission Date: 20061208
  Serious: Yes (Life-Threatening, Hospitalization)
  Sender: FDA-Public Use
  Company Number: GB-BRISTOL-MYERS SQUIBB COMPANY-13480330

PATIENT
  Age: 55 Year
  Sex: Male

DRUGS (5)
  1. METFORMIN HYDROCHLORIDE [Suspect]
     Indication: DIABETES MELLITUS NON-INSULIN-DEPENDENT
     Route: 048
  2. ASPIRIN [Concomitant]
     Route: 048
  3. LOSARTAN POSTASSIUM [Concomitant]
     Route: 048
     Dates: end: 20060627
  4. RAMIPRIL [Concomitant]
     Dosage: DECREASED TO 5MG ON 02-JUL-2006
     Route: 048
     Dates: start: 20060628
  5. SILDENAFIL CITRATE [Concomitant]
     Route: 048

REACTIONS (4)
  - CARDIAC ARREST [None]
  - CONFUSIONAL STATE [None]
  - GLASGOW COMA SCALE ABNORMAL [None]
  - LETHARGY [None]
